FAERS Safety Report 15300093 (Version 2)
Quarter: 2019Q1

REPORT INFORMATION
  Report Type: Spontaneous
  Country: US (occurrence: US)
  Receive Date: 20180821
  Receipt Date: 20190314
  Transmission Date: 20190417
  Serious: No
  Sender: FDA-Public Use
  Company Number: US-PFIZER INC-2018336170

PATIENT
  Age: 36 Year
  Sex: Male

DRUGS (2)
  1. NEURONTIN [Concomitant]
     Active Substance: GABAPENTIN
     Indication: POST-TRAUMATIC PAIN
     Dosage: 600 MG, 3X/DAY
  2. LYRICA [Suspect]
     Active Substance: PREGABALIN
     Indication: POST-TRAUMATIC PAIN
     Dosage: 200 MG, 3X/DAY [1 CAP 3 TIMES A DAY 90 DAYS]

REACTIONS (1)
  - Pain [Unknown]
